FAERS Safety Report 13393848 (Version 1)
Quarter: 2017Q1

REPORT INFORMATION
  Report Type: Spontaneous
  Country: US (occurrence: US)
  Receive Date: 20170331
  Receipt Date: 20170331
  Transmission Date: 20170429
  Serious: No
  Sender: FDA-Public Use
  Company Number: PHEH2017US009021

PATIENT
  Sex: Male

DRUGS (2)
  1. COSENTYX [Suspect]
     Active Substance: SECUKINUMAB
     Indication: PSORIATIC ARTHROPATHY
     Dosage: 300 MG, UNK
     Route: 065
     Dates: start: 20170320
  2. HUMIRA [Suspect]
     Active Substance: ADALIMUMAB
     Route: 065

REACTIONS (7)
  - Rash [Unknown]
  - Stomatitis [Unknown]
  - Oral herpes [Unknown]
  - Psoriatic arthropathy [Unknown]
  - Fatigue [Unknown]
  - Arthralgia [Unknown]
  - Rash erythematous [Unknown]
